FAERS Safety Report 5993729-5 (Version None)
Quarter: 2008Q4

REPORT INFORMATION
  Report Type: 
  Country: None (occurrence: None)
  Receive Date: 20081212
  Receipt Date: 20081201
  Transmission Date: 20090506
  Serious: Yes (Hospitalization)
  Sender: FDA-Public Use
  Company Number: US-ELI_LILLY_AND_COMPANY-US200810003649

PATIENT
  Sex: Female

DRUGS (4)
  1. FORTEO [Suspect]
     Dosage: UNK, UNK
     Dates: start: 20080301
  2. PREMARIN [Concomitant]
  3. MULTI-VITAMIN [Concomitant]
  4. DARVOCET [Concomitant]

REACTIONS (4)
  - BONE DISORDER [None]
  - FOOT DEFORMITY [None]
  - IMPAIRED HEALING [None]
  - PAIN [None]
